FAERS Safety Report 5074770-6 (Version None)
Quarter: 2006Q3

REPORT INFORMATION
  Report Type: 
  Country: None (occurrence: None)
  Receive Date: 20060807
  Receipt Date: 20060725
  Transmission Date: 20061208
  Serious: Yes (Life-Threatening, Other)
  Sender: FDA-Public Use
  Company Number: GB200606000520

PATIENT
  Age: 58 Year
  Sex: Female
  Weight: 89.9 kg

DRUGS (12)
  1. CYMBALTA [Suspect]
     Indication: DEPRESSION
     Dosage: 60 MG, ORAL
     Route: 048
     Dates: start: 20060314, end: 20060324
  2. LITHIUM CARBONATE [Concomitant]
  3. ATORVASTATIN CALCIUM [Concomitant]
  4. IMDUR [Concomitant]
  5. NITRAZEPAM [Concomitant]
  6. SEREVENT [Concomitant]
  7. PULMICORT [Concomitant]
  8. DIAZEPAM [Concomitant]
  9. GAVISCON [Concomitant]
  10. EPANUTIN (PHENYTOIN SOIDUM) [Concomitant]
  11. GTN (GLYCERYL TRINITRATE) [Concomitant]
  12. VALPROATE SODIUM [Concomitant]

REACTIONS (2)
  - CONVERSION DISORDER [None]
  - GLOMERULAR FILTRATION RATE DECREASED [None]
